FAERS Safety Report 9118345 (Version 1)
Quarter: 2013Q1

REPORT INFORMATION
  Report Type: Spontaneous
  Country: FR (occurrence: None)
  Receive Date: 20130128
  Receipt Date: 20130128
  Transmission Date: 20140127
  Serious: Yes (Death)
  Sender: FDA-Public Use
  Company Number: AUR-APL-2013-00974

PATIENT
  Age: 55 Year
  Sex: Female

DRUGS (15)
  1. BISOPROLOL [Suspect]
     Indication: PRODUCT USED FOR UNKNOWN INDICATION
     Route: 048
  2. CORDARONE [Suspect]
     Indication: PRODUCT USED FOR UNKNOWN INDICATION
     Route: 048
     Dates: start: 1999, end: 2011
  3. ALDACTONE (SPIRONOLACTONE) [Concomitant]
  4. BURINEX (BUMETANIDE) [Concomitant]
  5. INEGY (INEGY) [Concomitant]
  6. KARDEGIC [Suspect]
  7. PREVISCAN [Suspect]
  8. RAMIPRIL (RAMIPRIL) [Concomitant]
  9. PROGRAF (TACROLIMUS) [Concomitant]
  10. CORTANYCL (PREDNISONE) [Concomitant]
  11. INEXIUM (ESOMEPRAZOLE MAGNESIUM) [Concomitant]
  12. TAHOR (ATORVASTATIN CALCIUM) [Concomitant]
  13. BACTRIM (BACTRIM) [Concomitant]
  14. ROVALCYTE (VALGANCICLOVIR) [Concomitant]
  15. ATARAX (HYDROZYZINE) [Concomitant]

REACTIONS (11)
  - Interstitial lung disease [None]
  - Arrhythmia supraventricular [None]
  - Ventricular arrhythmia [None]
  - Heart transplant [None]
  - Pneumonia [None]
  - Post procedural complication [None]
  - Acute respiratory distress syndrome [None]
  - Cardiogenic shock [None]
  - Heart transplant rejection [None]
  - Sepsis [None]
  - Embolism [None]
